FAERS Safety Report 9539935 (Version 1)
Quarter: 2013Q2

REPORT INFORMATION
  Report Type: Spontaneous
  Country: US (occurrence: None)
  Receive Date: 20130524
  Receipt Date: 20130524
  Transmission Date: 20140414
  Serious: Yes (Hospitalization)
  Sender: FDA-Public Use
  Company Number: PHEH2013US002639

PATIENT
  Sex: Female

DRUGS (4)
  1. GILENYA (FINGOLIMOD) CAPSULE, 0.5MG [Suspect]
     Dosage: 0.5 MG, QD, ORAL
     Route: 048
     Dates: start: 201205
  2. ACYCLOVIR (ACICLOVIR) (ACICLOVIR) [Suspect]
  3. AMPICILLIN (AMPICILLIN) [Concomitant]
  4. RITALIN (METHYLPHENIDATE HYDROCHLORIDE) [Concomitant]

REACTIONS (1)
  - Heart rate decreased [None]
